FAERS Safety Report 6663411-X (Version None)
Quarter: 2010Q2

REPORT INFORMATION
  Report Type: 
  Country: None (occurrence: None)
  Receive Date: 20100401
  Receipt Date: 20090929
  Transmission Date: 20101027
  Serious: Yes (Hospitalization)
  Sender: FDA-Public Use
  Company Number: JP-BRISTOL-MYERS SQUIBB COMPANY-14802797

PATIENT
  Age: 54 Year
  Sex: Female

DRUGS (5)
  1. IRBETAN [Suspect]
     Indication: HYPERTENSION
     Route: 048
     Dates: start: 20090829, end: 20090930
  2. MERCAZOLE [Concomitant]
     Indication: HYPERTHYROIDISM
     Dosage: 30MG(09JUL-14AUG09;20MG(15AUG09-CONT)
     Route: 048
     Dates: start: 20090709
  3. WARFARIN SODIUM [Concomitant]
     Indication: ATRIAL FIBRILLATION
     Route: 048
     Dates: start: 20090702
  4. LANSOPRAZOLE [Concomitant]
     Indication: ATRIAL FIBRILLATION
     Route: 048
     Dates: start: 20090702
  5. MAINTATE [Concomitant]
     Indication: ATRIAL FIBRILLATION
     Route: 048
     Dates: start: 20090702

REACTIONS (1)
  - RHABDOMYOLYSIS [None]
